FAERS Safety Report 24362879 (Version 1)
Quarter: 2024Q3

REPORT INFORMATION
  Report Type: Spontaneous
  Country: US (occurrence: None)
  Receive Date: 20240925
  Receipt Date: 20240925
  Transmission Date: 20241017
  Serious: No
  Sender: Public
  Company Number: None

PATIENT
  Age: 73 Year
  Sex: Male
  Weight: 77.11 kg

DRUGS (5)
  1. TAMSULOSIN HYDROCHLORIDE [Suspect]
     Active Substance: TAMSULOSIN HYDROCHLORIDE
     Indication: Benign prostatic hyperplasia
     Dosage: FREQUENCY : DAILY;?
     Dates: start: 20230922, end: 20240914
  2. TAMSULOSIN HYDROCHLORIDE [Suspect]
     Active Substance: TAMSULOSIN HYDROCHLORIDE
     Indication: Nocturia
  3. SYNTHROID [Concomitant]
     Active Substance: LEVOTHYROXINE SODIUM
  4. MIDODRINE [Concomitant]
     Active Substance: MIDODRINE
  5. Nicatinamide [Concomitant]

REACTIONS (2)
  - Sleep disorder [None]
  - Abnormal dreams [None]

NARRATIVE: CASE EVENT DATE: 20240910
